FAERS Safety Report 8380788-8 (Version None)
Quarter: 2012Q2

REPORT INFORMATION
  Report Type: 
  Country: None (occurrence: None)
  Receive Date: 20120523
  Receipt Date: 20120508
  Transmission Date: 20120825
  Serious: Yes (Hospitalization)
  Sender: FDA-Public Use
  Company Number: US-ROCHE-1068385

PATIENT
  Sex: Female
  Weight: 102.15 kg

DRUGS (1)
  1. XELODA [Suspect]
     Indication: COLORECTAL CANCER METASTATIC
     Dosage: THERAPY END DATE:/APR/2012
     Route: 048
     Dates: start: 20120409

REACTIONS (6)
  - CONFUSIONAL STATE [None]
  - DYSGEUSIA [None]
  - SKIN FISSURES [None]
  - HALLUCINATION [None]
  - GAIT DISTURBANCE [None]
  - STOMATITIS [None]
